FAERS Safety Report 14946402 (Version 2)
Quarter: 2018Q3

REPORT INFORMATION
  Report Type: Spontaneous
  Country: US (occurrence: US)
  Receive Date: 20180529
  Receipt Date: 20180706
  Transmission Date: 20181010
  Serious: No
  Sender: FDA-Public Use
  Company Number: US-SA-2018SA099265

PATIENT
  Sex: Male

DRUGS (6)
  1. TOUJEO [Suspect]
     Active Substance: INSULIN GLARGINE
     Indication: DIABETES MELLITUS
     Dosage: 40 DF,HS
     Route: 051
  2. SOLOSTAR [Suspect]
     Active Substance: DEVICE
     Indication: DIABETES MELLITUS
  3. SOLOSTAR [Suspect]
     Active Substance: DEVICE
     Indication: DIABETES MELLITUS
     Dosage: UNK UNK,QD
     Dates: start: 201804
  4. SOLIQUA 100/33 [Suspect]
     Active Substance: INSULIN GLARGINE\LIXISENATIDE
     Indication: DIABETES MELLITUS
     Dosage: 60 DF,QD
     Route: 058
     Dates: start: 201804
  5. SOLIQUA 100/33 [Suspect]
     Active Substance: INSULIN GLARGINE\LIXISENATIDE
     Dosage: 60 DF,1X
     Route: 058
     Dates: start: 20180430, end: 20180430
  6. SOLOSTAR [Suspect]
     Active Substance: DEVICE
     Dosage: UNK UNK,1X
     Dates: start: 20180430, end: 20180430

REACTIONS (2)
  - Glycosylated haemoglobin increased [Unknown]
  - Wrong drug administered [Unknown]

NARRATIVE: CASE EVENT DATE: 2018
